FAERS Safety Report 7473952-3 (Version None)
Quarter: 2011Q2

REPORT INFORMATION
  Report Type: 
  Country: None (occurrence: None)
  Receive Date: 20110511
  Receipt Date: 20090930
  Transmission Date: 20111010
  Serious: Yes (Death, Hospitalization, Other)
  Sender: FDA-Public Use
  Company Number: US-BAYER-200934860NA

PATIENT
  Age: 74 Year
  Sex: Male
  Weight: 50.567 kg

DRUGS (12)
  1. ACETYLSALICYLIC ACID SRT [Concomitant]
     Dosage: 325 MG, QD
  2. AMIODARONE HCL [Concomitant]
  3. NITROGLYCERIN [Concomitant]
  4. TRASYLOL [Suspect]
     Indication: CORONARY ARTERY BYPASS
     Dosage: LOADING DOSE 200ML, 50ML/HR INFUSION
     Route: 042
     Dates: start: 20070813, end: 20070813
  5. PLAVIX [Concomitant]
     Dosage: 75 MG, QD
  6. INSULIN [Concomitant]
  7. DOPAMINE HCL [Concomitant]
  8. METFORMIN HCL [Concomitant]
     Dosage: 500 MG, QD
  9. TRIAMTERENE AND HYDROCHLOROTHIAZIDE [Concomitant]
     Dosage: 75/50 MG DAILY
  10. PLATELETS [Concomitant]
     Dosage: 1 U, UNK
     Dates: start: 20070813
  11. LOPID [Concomitant]
     Dosage: 600 MG, BID
  12. PRAVASTATIN [Concomitant]
     Dosage: 40 MG, QD

REACTIONS (11)
  - INJURY [None]
  - ANXIETY [None]
  - RENAL FAILURE [None]
  - RENAL IMPAIRMENT [None]
  - STRESS [None]
  - EMOTIONAL DISTRESS [None]
  - PAIN [None]
  - RENAL INJURY [None]
  - UNEVALUABLE EVENT [None]
  - FEAR [None]
  - ANHEDONIA [None]
